FAERS Safety Report 7866752-3 (Version None)
Quarter: 2011Q4

REPORT INFORMATION
  Report Type: 
  Country: None (occurrence: None)
  Receive Date: 20111028
  Receipt Date: 20110811
  Transmission Date: 20120403
  Serious: No
  Sender: FDA-Public Use
  Company Number: US-GLAXOSMITHKLINE-A0940525A

PATIENT
  Age: 87 Year
  Sex: Female

DRUGS (8)
  1. ADVAIR DISKUS 100/50 [Suspect]
     Indication: PRODUCTIVE COUGH
     Dosage: 1PUFF TWICE PER DAY
     Route: 055
     Dates: start: 20110501
  2. CITALOPRAM HYDROBROMIDE [Concomitant]
  3. POTASSIUM [Concomitant]
  4. PRAVASTATIN [Concomitant]
  5. AMLODIPINE BESYLATE AND BENAZEPRIL HCL [Concomitant]
  6. FUROSEMIDE [Concomitant]
  7. AMIODARONE HCL [Concomitant]
  8. LEVOXYL [Concomitant]

REACTIONS (6)
  - MYALGIA [None]
  - THROAT IRRITATION [None]
  - MUCOSAL DRYNESS [None]
  - BONE PAIN [None]
  - HEADACHE [None]
  - DYSPHONIA [None]
